FAERS Safety Report 14496575 (Version 2)
Quarter: 2018Q2

REPORT INFORMATION
  Report Type: Report from Study
  Country: GB (occurrence: GB)
  Receive Date: 20180207
  Receipt Date: 20180509
  Transmission Date: 20180711
  Serious: Yes (Hospitalization)
  Sender: FDA-Public Use
  Company Number: PHHY2018GB014614

PATIENT
  Age: 74 Year
  Sex: Male

DRUGS (1)
  1. COSENTYX [Suspect]
     Active Substance: SECUKINUMAB
     Indication: ANKYLOSING SPONDYLITIS
     Dosage: 150 MG, QMO
     Route: 058
     Dates: start: 20171123

REACTIONS (8)
  - Inappropriate schedule of drug administration [Unknown]
  - Malaise [Unknown]
  - Feeling abnormal [Unknown]
  - Pneumonia [Unknown]
  - Infection [Unknown]
  - Back pain [Not Recovered/Not Resolved]
  - Sepsis [Unknown]
  - Pneumothorax [Unknown]

NARRATIVE: CASE EVENT DATE: 20171123
